FAERS Safety Report 26135353 (Version 1)
Quarter: 2025Q4

REPORT INFORMATION
  Report Type: Spontaneous
  Country: GB (occurrence: GB)
  Receive Date: 20251209
  Receipt Date: 20251209
  Transmission Date: 20260118
  Serious: Yes (Life-Threatening, Other)
  Sender: NOVO NORDISK
  Company Number: None

PATIENT
  Age: 74 Year
  Sex: Female
  Weight: 60 kg

DRUGS (2)
  1. PROPRANOLOL [Suspect]
     Active Substance: PROPRANOLOL HYDROCHLORIDE
     Indication: Anxiety
     Dosage: 10 MG, BID
     Route: 048
     Dates: start: 20251114, end: 20251124
  2. INSULIN HUMAN [Suspect]
     Active Substance: INSULIN HUMAN
     Indication: Type 1 diabetes mellitus
     Dosage: UNK

REACTIONS (3)
  - Hyperinsulinaemic hypoglycaemia [Not Recovered/Not Resolved]
  - Shock [Unknown]
  - Drug interaction [Unknown]

NARRATIVE: CASE EVENT DATE: 20251124
